FAERS Safety Report 9711279 (Version 2)
Quarter: 2013Q4

REPORT INFORMATION
  Report Type: Spontaneous
  Country: CA (occurrence: CA)
  Receive Date: 20131126
  Receipt Date: 20131126
  Transmission Date: 20140711
  Serious: Yes (Other)
  Sender: FDA-Public Use
  Company Number: CA-ELI_LILLY_AND_COMPANY-CA201309003576

PATIENT
  Age: 11 Year
  Sex: Male

DRUGS (4)
  1. STRATTERA [Suspect]
     Indication: PRODUCT USED FOR UNKNOWN INDICATION
     Dosage: 40 MG, UNKNOWN
     Route: 065
     Dates: start: 2009
  2. STRATTERA [Suspect]
     Dosage: 100 MG, UNKNOWN
     Route: 065
     Dates: start: 2009
  3. RITALIN [Concomitant]
     Indication: PRODUCT USED FOR UNKNOWN INDICATION
     Dosage: UNK, BID
     Route: 065
  4. RISPERIDONE [Concomitant]
     Indication: PRODUCT USED FOR UNKNOWN INDICATION
     Dosage: 2 MG, UNKNOWN
     Route: 065

REACTIONS (13)
  - Self injurious behaviour [Recovered/Resolved]
  - Suicidal ideation [Recovered/Resolved]
  - Weight increased [Unknown]
  - Memory impairment [Unknown]
  - Feeling abnormal [Unknown]
  - Acne [Unknown]
  - Agitation [Unknown]
  - Pruritus [Unknown]
  - Insomnia [Unknown]
  - Headache [Recovered/Resolved]
  - Decreased appetite [Unknown]
  - Abdominal pain upper [Not Recovered/Not Resolved]
  - Drug ineffective [Unknown]
